FAERS Safety Report 6146960-2 (Version None)
Quarter: 2009Q2

REPORT INFORMATION
  Report Type: 
  Country: None (occurrence: None)
  Receive Date: 20090407
  Receipt Date: 20090323
  Transmission Date: 20091009
  Serious: Yes (Death)
  Sender: FDA-Public Use
  Company Number: JP-GENENTECH-276010

PATIENT
  Age: 75 Year
  Sex: Male

DRUGS (16)
  1. RITUXAN [Suspect]
     Indication: DRUG USE FOR UNKNOWN INDICATION
     Dosage: 375 MG/M2, QD
     Route: 041
  2. CELLCEPT [Suspect]
     Indication: PROPHYLAXIS AGAINST TRANSPLANT REJECTION
     Dosage: 500 MG, BID
     Route: 048
  3. CELLCEPT [Suspect]
     Dosage: 1500 MG, UNK
  4. SIMULECT [Suspect]
     Indication: PROPHYLAXIS AGAINST TRANSPLANT REJECTION
     Dosage: 20 MG, QD
     Route: 042
  5. PROGRAF [Suspect]
     Indication: PROPHYLAXIS AGAINST TRANSPLANT REJECTION
     Dosage: 7.5 MG, BID
     Route: 041
  6. PROGRAF [Suspect]
     Dosage: 7.5 MG, QD
     Route: 048
  7. STEROIDS (UNK INGREDIENTS) [Suspect]
     Indication: DRUG USE FOR UNKNOWN INDICATION
  8. ONE SUSPECTED MEDICATION [Suspect]
     Indication: PROPHYLAXIS AGAINST TRANSPLANT REJECTION
     Dosage: 24 MG, BID
     Route: 048
  9. DENOSINE [Concomitant]
     Indication: DRUG USE FOR UNKNOWN INDICATION
  10. HABEKACIN [Concomitant]
     Indication: DRUG USE FOR UNKNOWN INDICATION
  11. GAMMA-GLOBULIN ^BEHRINGWERKE^ [Concomitant]
     Indication: DRUG USE FOR UNKNOWN INDICATION
  12. TAZOCIN [Concomitant]
     Indication: DRUG USE FOR UNKNOWN INDICATION
  13. NEUTROGIN [Concomitant]
     Indication: DRUG USE FOR UNKNOWN INDICATION
  14. FOY [Concomitant]
     Indication: DRUG USE FOR UNKNOWN INDICATION
  15. GANCICLOVIR [Concomitant]
     Indication: DRUG USE FOR UNKNOWN INDICATION
  16. MEDROL [Concomitant]
     Indication: DRUG USE FOR UNKNOWN INDICATION

REACTIONS (2)
  - ENCEPHALITIS CYTOMEGALOVIRUS [None]
  - MENINGITIS VIRAL [None]
